FAERS Safety Report 13846566 (Version 1)
Quarter: 2017Q3

REPORT INFORMATION
  Report Type: Spontaneous
  Country: FR (occurrence: FR)
  Receive Date: 20170808
  Receipt Date: 20170808
  Transmission Date: 20171127
  Serious: Yes (Hospitalization, Other)
  Sender: FDA-Public Use
  Company Number: PHHY2017FR115013

PATIENT
  Age: 47 Year
  Sex: Male

DRUGS (1)
  1. CARBAMAZEPINE. [Suspect]
     Active Substance: CARBAMAZEPINE
     Indication: DEPRESSION
     Route: 065

REACTIONS (9)
  - Joint effusion [Recovered/Resolved]
  - Arthralgia [Unknown]
  - Inflammation [Recovering/Resolving]
  - Motor dysfunction [Unknown]
  - Diarrhoea [Recovered/Resolved]
  - Pyrexia [Recovered/Resolved]
  - Hyperleukocytosis [Recovering/Resolving]
  - Arthritis reactive [Unknown]
  - Clostridium difficile infection [Unknown]
